FAERS Safety Report 4868604-X (Version None)
Quarter: 2005Q4

REPORT INFORMATION
  Report Type: 
  Country: None (occurrence: None)
  Receive Date: 20051223
  Receipt Date: 20051215
  Transmission Date: 20060501
  Serious: Yes (Other)
  Sender: FDA-Public Use
  Company Number: 13122

PATIENT
  Age: 14 Year
  Sex: Male

DRUGS (8)
  1. METHOTREXATE [Suspect]
     Dosage: 27.5 MG WEEKLY ST
     Dates: start: 19980101
  2. ENBREL [Suspect]
     Indication: PSORIATIC ARTHROPATHY
     Dosage: 25 MG 2/WK ST
     Dates: start: 20040705
  3. CYCLOSPORINE [Concomitant]
  4. FOLIC ACID [Concomitant]
  5. FELDENE MELT [Concomitant]
  6. LANSOPRAZOLE [Concomitant]
  7. TYLEX [Concomitant]
  8. COAL TAR [Concomitant]

REACTIONS (2)
  - MALAISE [None]
  - PSORIATIC ARTHROPATHY [None]
